FAERS Safety Report 4743992-3 (Version None)
Quarter: 2005Q3

REPORT INFORMATION
  Report Type: 
  Country: None (occurrence: None)
  Receive Date: 20050801
  Receipt Date: 20041105
  Transmission Date: 20060218
  Serious: Yes (Hospitalization)
  Sender: FDA-Public Use
  Company Number: 210261

PATIENT
  Age: 81 Year
  Sex: Male
  Weight: 80.7 kg

DRUGS (2)
  1. RITUXAN [Suspect]
     Indication: WALDENSTROM'S MACROGLOBULINAEMIA
     Dosage: 750 MG, 1/WEEK, INTRAVENOUS
     Route: 042
     Dates: start: 20041020, end: 20041027
  2. NEXIUM [Concomitant]

REACTIONS (3)
  - PANCYTOPENIA [None]
  - POLYARTHRITIS [None]
  - SERUM SICKNESS [None]
